FAERS Safety Report 7213615-2 (Version None)
Quarter: 2011Q1

REPORT INFORMATION
  Report Type: 
  Country: None (occurrence: None)
  Receive Date: 20110106
  Receipt Date: 20101228
  Transmission Date: 20110831
  Serious: Yes (Other)
  Sender: FDA-Public Use
  Company Number: CHPA2010US19648

PATIENT
  Age: 64 Year
  Sex: Female
  Weight: 95.238 kg

DRUGS (1)
  1. VOLTAREN [Suspect]
     Indication: ARTHROPATHY
     Dosage: 4 G, ONCE A DAY
     Route: 061
     Dates: start: 20101101, end: 20101225

REACTIONS (2)
  - VAGINAL HAEMORRHAGE [None]
  - OFF LABEL USE [None]
